FAERS Safety Report 10495988 (Version 1)
Quarter: 2014Q4

REPORT INFORMATION
  Report Type: Spontaneous
  Country: US (occurrence: US)
  Receive Date: 20141003
  Receipt Date: 20141003
  Transmission Date: 20150528
  Serious: No
  Sender: FDA-Public Use
  Company Number: US-009507513-1410USA001200

PATIENT
  Sex: Female

DRUGS (1)
  1. CLINORIL [Suspect]
     Active Substance: SULINDAC
     Route: 048

REACTIONS (1)
  - Drug hypersensitivity [Unknown]
